FAERS Safety Report 10778418 (Version 1)
Quarter: 2015Q1

REPORT INFORMATION
  Report Type: Spontaneous
  Country: US (occurrence: US)
  Receive Date: 20150209
  Receipt Date: 20150209
  Transmission Date: 20150721
  Serious: Yes (Other)
  Sender: FDA-Public Use
  Company Number: US-MYLANLABS-2015M1002730

PATIENT

DRUGS (3)
  1. METHIMAZOLE TABLETS, USP [Suspect]
     Active Substance: METHIMAZOLE
     Indication: BASEDOW^S DISEASE
     Dosage: 10 MG, QD
     Route: 048
     Dates: start: 201408, end: 201410
  2. METHIMAZOLE TABLETS, USP [Suspect]
     Active Substance: METHIMAZOLE
     Dosage: 10 MG, QD
     Route: 048
     Dates: start: 201410
  3. METHIMAZOLE TABLETS, USP [Suspect]
     Active Substance: METHIMAZOLE
     Dosage: 15 MG, QD
     Route: 048
     Dates: start: 201410, end: 201410

REACTIONS (1)
  - Urinary retention [Recovered/Resolved]

NARRATIVE: CASE EVENT DATE: 201410
